FAERS Safety Report 5830207-8 (Version None)
Quarter: 2008Q3

REPORT INFORMATION
  Report Type: 
  Country: None (occurrence: None)
  Receive Date: 20080801
  Receipt Date: 20080725
  Transmission Date: 20090109
  Serious: Yes (Hospitalization)
  Sender: FDA-Public Use
  Company Number: A0739583A

PATIENT
  Sex: Female

DRUGS (12)
  1. LANOXIN [Suspect]
     Indication: SUPRAVENTRICULAR TACHYCARDIA
     Dosage: .25MG PER DAY
     Route: 048
     Dates: start: 19970101
  2. MAXALT [Suspect]
     Route: 048
  3. ALPRAZOLAM [Concomitant]
  4. ROZEREM [Concomitant]
  5. ENALAPRIL MALEATE [Concomitant]
  6. PREVACID [Concomitant]
  7. METHIMAZOLE [Concomitant]
  8. VICODIN [Concomitant]
  9. MULTI-VITAMIN [Concomitant]
  10. FOLIC ACID [Concomitant]
  11. POTASSIUM CHLORIDE [Concomitant]
  12. MAXALT [Concomitant]

REACTIONS (11)
  - BURNING SENSATION [None]
  - DIARRHOEA [None]
  - HEART RATE INCREASED [None]
  - HYPERHIDROSIS [None]
  - LIMB MALFORMATION [None]
  - OEDEMA PERIPHERAL [None]
  - PAIN [None]
  - PALPITATIONS [None]
  - PHANTOM PAIN [None]
  - THERAPEUTIC AGENT TOXICITY [None]
  - VASODILATATION [None]
